FAERS Safety Report 16658473 (Version 1)
Quarter: 2019Q3

REPORT INFORMATION
  Report Type: Other
  Country: US (occurrence: US)
  Receive Date: 20190801
  Receipt Date: 20190801
  Transmission Date: 20191004
  Serious: No
  Sender: FDA-Public Use
  Company Number: US-LEADIANT BIOSCIENCES, INC.-2019STPI000200

PATIENT

DRUGS (8)
  1. VITAMIN D [VITAMIN D NOS] [Concomitant]
     Active Substance: VITAMIN D NOS
  2. CLOTRIMAZOLE CREAM [Concomitant]
     Active Substance: CLOTRIMAZOLE
  3. TERBINAFINE. [Concomitant]
     Active Substance: TERBINAFINE
  4. GRISEOFULVIN. [Concomitant]
     Active Substance: GRISEOFULVIN
  5. LEVOTHYROXINE. [Concomitant]
     Active Substance: LEVOTHYROXINE
  6. LIDOPRIL [Concomitant]
     Active Substance: LIDOCAINE\PRILOCAINE
  7. REVCOVI [Suspect]
     Active Substance: ELAPEGADEMASE-LVLR
     Indication: COMBINED IMMUNODEFICIENCY
     Dosage: 7.5 MILLIGRAM, QW
     Route: 030
     Dates: start: 20190104
  8. NEOPOLYDEX [Concomitant]

REACTIONS (1)
  - Application site pain [Not Recovered/Not Resolved]
